FAERS Safety Report 6537556-9 (Version None)
Quarter: 2010Q1

REPORT INFORMATION
  Report Type: 
  Country: None (occurrence: None)
  Receive Date: 20100114
  Receipt Date: 20091228
  Transmission Date: 20100710
  Serious: Yes (Hospitalization)
  Sender: FDA-Public Use
  Company Number: IT-JNJFOC-20100102875

PATIENT
  Sex: Female

DRUGS (2)
  1. CONTRAMAL SR [Suspect]
     Indication: POST-TRAUMATIC HEADACHE
     Route: 048
     Dates: start: 20091027, end: 20091030
  2. OKI [Concomitant]
     Route: 065

REACTIONS (6)
  - ABDOMINAL PAIN UPPER [None]
  - FAECALOMA [None]
  - NAUSEA [None]
  - OVERDOSE [None]
  - TRANSAMINASES INCREASED [None]
  - VOMITING [None]
